FAERS Safety Report 10172625 (Version 2)
Quarter: 2014Q3

REPORT INFORMATION
  Report Type: Report from Study
  Country: US (occurrence: US)
  Receive Date: 20140515
  Receipt Date: 20140819
  Transmission Date: 20150326
  Serious: Yes (Death)
  Sender: FDA-Public Use
  Company Number: US-ABBVIE-14P-163-1236305-00

PATIENT
  Age: 85 Year
  Sex: Female
  Weight: 108.96 kg

DRUGS (1)
  1. HUMIRA [Suspect]
     Active Substance: ADALIMUMAB
     Indication: RHEUMATOID ARTHRITIS
     Dosage: 3-4 YEARS
     Dates: start: 2010, end: 201401

REACTIONS (3)
  - Asthenia [Fatal]
  - Dementia [Fatal]
  - Gait disturbance [Fatal]

NARRATIVE: CASE EVENT DATE: 201308
